FAERS Safety Report 9420949 (Version 1)
Quarter: 2013Q3

REPORT INFORMATION
  Report Type: Spontaneous
  Country: US (occurrence: US)
  Receive Date: 20130725
  Receipt Date: 20130725
  Transmission Date: 20140515
  Serious: No
  Sender: FDA-Public Use
  Company Number: US-ABBOTT-13P-163-1111881-00

PATIENT
  Sex: Female
  Weight: 65.83 kg

DRUGS (2)
  1. SYNTHROID [Suspect]
     Indication: HYPOTHYROIDISM
     Dates: start: 1991, end: 1991
  2. CALCIUM [Concomitant]

REACTIONS (3)
  - Psychomotor hyperactivity [Recovered/Resolved]
  - Insomnia [Recovered/Resolved]
  - Restlessness [Recovered/Resolved]
